FAERS Safety Report 18044431 (Version 1)
Quarter: 2020Q3

REPORT INFORMATION
  Report Type: Spontaneous
  Country: US (occurrence: US)
  Receive Date: 20200720
  Receipt Date: 20200720
  Transmission Date: 20201103
  Serious: Yes (Other)
  Sender: FDA-Public Use
  Company Number: US-PFIZER INC-2020270034

PATIENT
  Age: 49 Year
  Sex: Female
  Weight: 58.97 kg

DRUGS (1)
  1. ZITHROMAX [Suspect]
     Active Substance: AZITHROMYCIN DIHYDRATE
     Dosage: UNK

REACTIONS (7)
  - Oral infection [Not Recovered/Not Resolved]
  - Speech disorder [Unknown]
  - Head injury [Unknown]
  - Tooth infection [Not Recovered/Not Resolved]
  - Sinusitis [Unknown]
  - Brain injury [Unknown]
  - Post concussion syndrome [Unknown]

NARRATIVE: CASE EVENT DATE: 2016
